FAERS Safety Report 20489612 (Version 2)
Quarter: 2022Q1

REPORT INFORMATION
  Report Type: Report from Study
  Country: FR (occurrence: FR)
  Receive Date: 20220218
  Receipt Date: 20220221
  Transmission Date: 20220423
  Serious: Yes (Hospitalization)
  Sender: FDA-Public Use
  Company Number: FR-SERVIER-S22001529

PATIENT

DRUGS (11)
  1. PEGASPARGASE [Suspect]
     Active Substance: PEGASPARGASE
     Indication: Acute lymphocytic leukaemia
     Dosage: 3000 IU ON D4 AND D46
     Route: 042
     Dates: start: 20211206
  2. PEGASPARGASE [Suspect]
     Active Substance: PEGASPARGASE
     Dosage: 3000 IU ON D4 AND D46
     Route: 042
     Dates: start: 20220125
  3. VINCRISTINE [Suspect]
     Active Substance: VINCRISTINE
     Indication: Acute lymphocytic leukaemia
     Dosage: 1.8 MG ON D1, D8, D15, D43, AND D50
     Route: 042
     Dates: start: 20211203
  4. DOXORUBICIN [Suspect]
     Active Substance: DOXORUBICIN
     Indication: Acute lymphocytic leukaemia
     Dosage: 30 MG ON D1, D8, AND D15
     Route: 042
     Dates: start: 20211203, end: 20211217
  5. DEXAMETHASONE [Suspect]
     Active Substance: DEXAMETHASONE
     Indication: Acute lymphocytic leukaemia
     Dosage: 12 MG ON D1 TO D7, AND D15 TO D21
     Route: 048
     Dates: start: 20211203, end: 20211223
  6. METHOTREXATE [Suspect]
     Active Substance: METHOTREXATE
     Indication: Acute lymphocytic leukaemia
     Dosage: 15 MG ON D4 AND D31
     Route: 037
     Dates: start: 20211206, end: 20211213
  7. HYDROCORTISONE [Suspect]
     Active Substance: HYDROCORTISONE
     Indication: Acute lymphocytic leukaemia
     Dosage: 15 MG ON D4 AND D31
     Route: 037
     Dates: start: 20211206, end: 20211213
  8. CYTARABINE [Suspect]
     Active Substance: CYTARABINE
     Indication: Acute lymphocytic leukaemia
     Dosage: 30 MG ON D4 AND D31
     Route: 037
     Dates: start: 20211206, end: 20211213
  9. CYTARABINE [Suspect]
     Active Substance: CYTARABINE
     Dosage: 90 MG ON D31 TO D34, AND D38
     Route: 042
     Dates: start: 20220113, end: 20220123
  10. CYCLOPHOSPHAMIDE [Suspect]
     Active Substance: CYCLOPHOSPHAMIDE
     Indication: Acute lymphocytic leukaemia
     Dosage: 1210 MG ON D29
     Route: 065
     Dates: start: 20220111
  11. THIOGUANINE [Suspect]
     Active Substance: THIOGUANINE
     Indication: Acute lymphocytic leukaemia
     Dosage: 70 MG ON D29 TO D42
     Route: 048
     Dates: start: 20220111, end: 20220124

REACTIONS (2)
  - Febrile bone marrow aplasia [Recovering/Resolving]
  - COVID-19 [Recovering/Resolving]

NARRATIVE: CASE EVENT DATE: 20220129
